FAERS Safety Report 7007605-2 (Version None)
Quarter: 2010Q3

REPORT INFORMATION
  Report Type: 
  Country: None (occurrence: None)
  Receive Date: 20100917
  Receipt Date: 20100906
  Transmission Date: 20110219
  Serious: Yes (Other)
  Sender: FDA-Public Use
  Company Number: B0674528A

PATIENT
  Age: 7 Year
  Sex: Male

DRUGS (3)
  1. CARBOPLATIN [Suspect]
     Indication: NEUROBLASTOMA
  2. ETOPOSIDE [Suspect]
     Indication: NEUROBLASTOMA
  3. STEM CELL TRANSPLANT [Concomitant]

REACTIONS (3)
  - RENAL IMPAIRMENT [None]
  - VOMITING [None]
  - WHITE BLOOD CELL COUNT DECREASED [None]
